FAERS Safety Report 25748058 (Version 1)
Quarter: 2025Q3

REPORT INFORMATION
  Report Type: Spontaneous
  Country: CN (occurrence: CN)
  Receive Date: 20250901
  Receipt Date: 20250901
  Transmission Date: 20251021
  Serious: Yes (Hospitalization, Other)
  Sender: ABBVIE
  Company Number: CN-ABBVIE-6436876

PATIENT
  Age: 78 Year
  Sex: Female
  Weight: 45 kg

DRUGS (3)
  1. VENETOCLAX [Suspect]
     Active Substance: VENETOCLAX
     Indication: Acute myeloid leukaemia
     Dosage: 200 MILLIGRAM
     Route: 048
     Dates: start: 20250721, end: 20250728
  2. VENETOCLAX [Suspect]
     Active Substance: VENETOCLAX
     Indication: Acute myeloid leukaemia
     Dosage: 100 MILLIGRAM
     Route: 048
     Dates: start: 20250718, end: 20250719
  3. AZACITIDINE [Suspect]
     Active Substance: AZACITIDINE
     Indication: Acute myeloid leukaemia
     Dosage: 100 MILLIGRAM?DRIP
     Route: 042
     Dates: start: 20250718, end: 20250723

REACTIONS (9)
  - Myelosuppression [Not Recovered/Not Resolved]
  - Full blood count decreased [Unknown]
  - Fatigue [Unknown]
  - Pyrexia [Recovered/Resolved]
  - Supraventricular tachycardia [Recovering/Resolving]
  - Ecchymosis [Not Recovered/Not Resolved]
  - Petechiae [Not Recovered/Not Resolved]
  - Acute myeloid leukaemia [Unknown]
  - C-reactive protein increased [Unknown]

NARRATIVE: CASE EVENT DATE: 20250101
